FAERS Safety Report 26216687 (Version 1)
Quarter: 2025Q4

REPORT INFORMATION
  Report Type: Spontaneous
  Country: GB (occurrence: GB)
  Receive Date: 20251231
  Receipt Date: 20251231
  Transmission Date: 20260117
  Serious: Yes (Hospitalization, Other)
  Sender: ROCHE
  Company Number: GB-ROCHE-10000441695

PATIENT
  Age: 52 Year
  Sex: Male

DRUGS (1)
  1. HEMLIBRA [Suspect]
     Active Substance: EMICIZUMAB-KXWH
     Indication: Acquired haemophilia
     Route: 058
     Dates: start: 20250926

REACTIONS (6)
  - Pemphigoid [Not Recovered/Not Resolved]
  - Immune system disorder [Recovering/Resolving]
  - Oral mucosal blistering [Recovering/Resolving]
  - Mouth ulceration [Recovering/Resolving]
  - Rash [Unknown]
  - Acquired epidermolysis bullosa [Not Recovered/Not Resolved]

NARRATIVE: CASE EVENT DATE: 20251112
